FAERS Safety Report 18726852 (Version 2)
Quarter: 2021Q1

REPORT INFORMATION
  Report Type: Report from Study
  Country: JP (occurrence: JP)
  Receive Date: 20210111
  Receipt Date: 20210208
  Transmission Date: 20210419
  Serious: Yes (Hospitalization)
  Sender: FDA-Public Use
  Company Number: JP-EISAI MEDICAL RESEARCH-EC-2021-086266

PATIENT
  Age: 64 Year
  Sex: Male
  Weight: 67 kg

DRUGS (15)
  1. POSTERISAN [Concomitant]
     Active Substance: LIDOCAINE
     Indication: DERMATITIS
     Dates: start: 20191122
  2. NU?LOTAN [Concomitant]
     Active Substance: LOSARTAN POTASSIUM
     Indication: HYPERTENSION
     Dates: start: 20180919
  3. FUROSEMIDE. [Concomitant]
     Active Substance: FUROSEMIDE
     Indication: OEDEMA PERIPHERAL
     Dates: start: 20201223
  4. LOPERAMIDE [Concomitant]
     Active Substance: LOPERAMIDE
     Indication: DIARRHOEA
     Dates: start: 20191113
  5. LENVATINIB [Suspect]
     Active Substance: LENVATINIB
     Dosage: SUSPENDED AND REDUCED REPEATEDLY. DOSE AND FREQUENCY KNOWN.
     Route: 048
     Dates: start: 2020, end: 20201207
  6. THYRADIN?S [Concomitant]
     Active Substance: LEVOTHYROXINE
     Indication: BLOOD THYROID STIMULATING HORMONE INCREASED
     Dates: start: 20190418
  7. LENVATINIB [Suspect]
     Active Substance: LENVATINIB
     Indication: HEPATOCELLULAR CARCINOMA
     Route: 048
     Dates: start: 20180905, end: 20200708
  8. VEMLIDY [Concomitant]
     Active Substance: TENOFOVIR ALAFENAMIDE FUMARATE
     Indication: HEPATIC CIRRHOSIS
     Dates: start: 20191121
  9. SHAKUYAKUKANZOTO [Concomitant]
     Active Substance: HERBALS
     Indication: MUSCLE SPASMS
     Dates: start: 20200122
  10. NIVOLUMAB [Suspect]
     Active Substance: NIVOLUMAB
     Indication: HEPATOCELLULAR CARCINOMA
     Route: 041
     Dates: start: 20180905
  11. NIFEDIPINE. [Concomitant]
     Active Substance: NIFEDIPINE
     Indication: HYPERTENSION
     Dates: start: 20200624
  12. NEXIUM [Concomitant]
     Active Substance: ESOMEPRAZOLE MAGNESIUM
     Indication: ABDOMINAL PAIN UPPER
     Dates: start: 20181017
  13. HEPARINOID [Concomitant]
     Active Substance: CHONDROITIN SULFATE (BOVINE)
     Indication: SKIN DISORDER
     Dates: start: 20181024
  14. DIACORT [Concomitant]
     Active Substance: DIFLORASONE DIACETATE
     Indication: SKIN DISORDER
     Dates: start: 20181024
  15. CALONAL [Concomitant]
     Active Substance: ACETAMINOPHEN
     Indication: PAIN
     Dates: start: 20181128

REACTIONS (1)
  - Oedema peripheral [Recovering/Resolving]

NARRATIVE: CASE EVENT DATE: 20200205
